FAERS Safety Report 22775997 (Version 7)
Quarter: 2024Q3

REPORT INFORMATION
  Report Type: Report from Study
  Country: DE (occurrence: DE)
  Receive Date: 20230802
  Receipt Date: 20240913
  Transmission Date: 20241017
  Serious: Yes (Hospitalization)
  Sender: JOHNSON AND JOHNSON
  Company Number: DE-JNJFOC-20230765944

PATIENT
  Age: 82 Year
  Sex: Female
  Weight: 52 kg

DRUGS (10)
  1. GUSELKUMAB [Suspect]
     Active Substance: GUSELKUMAB
     Indication: Psoriatic arthropathy
     Dosage: LAST ADMINISTRATION DATE-20-NOV-2023
     Route: 058
     Dates: start: 20230315
  2. GUSELKUMAB [Suspect]
     Active Substance: GUSELKUMAB
  3. BISOPROLOL FUMARATE [Concomitant]
     Active Substance: BISOPROLOL FUMARATE
     Indication: Hypertension
     Route: 048
     Dates: start: 2021
  4. TORSEMIDE [Concomitant]
     Active Substance: TORSEMIDE
     Indication: Peripheral vascular disorder
     Route: 048
     Dates: start: 20170207
  5. CLOPIDOGREL [Concomitant]
     Active Substance: CLOPIDOGREL BISULFATE
     Indication: Peripheral vascular disorder
     Route: 048
     Dates: start: 20170925
  6. ATORVASTATIN [Concomitant]
     Active Substance: ATORVASTATIN
     Indication: Peripheral vascular disorder
     Route: 048
     Dates: start: 20200226
  7. DEKRISTOL NEU [Concomitant]
     Indication: Prophylaxis
     Route: 065
     Dates: start: 201311, end: 20230814
  8. PREGABALIN [Concomitant]
     Active Substance: PREGABALIN
     Indication: Pain
     Route: 048
     Dates: start: 20211015
  9. CHOLECALCIFEROL [Concomitant]
     Active Substance: CHOLECALCIFEROL
     Indication: Prophylaxis
     Route: 048
     Dates: start: 20230715
  10. ALLOPURINOL [Concomitant]
     Active Substance: ALLOPURINOL
     Indication: Hyperuricaemia
     Route: 048
     Dates: start: 201606

REACTIONS (3)
  - Syncope [Recovered/Resolved]
  - Syncope [Recovered/Resolved]
  - Osteolysis [Not Recovered/Not Resolved]

NARRATIVE: CASE EVENT DATE: 20230814
